FAERS Safety Report 19012906 (Version 1)
Quarter: 2021Q1

REPORT INFORMATION
  Report Type: Report from Study
  Country: None (occurrence: DE)
  Receive Date: 20210315
  Receipt Date: 20210315
  Transmission Date: 20210420
  Serious: Yes (Hospitalization)
  Sender: FDA-Public Use
  Company Number: DE-ABBVIE-21P-062-3765005-00

PATIENT
  Age: 65 Year
  Sex: Female
  Weight: 56.6 kg

DRUGS (3)
  1. CYTARABINE. [Concomitant]
     Active Substance: CYTARABINE
     Indication: ACUTE MYELOID LEUKAEMIA
     Dates: start: 20201206
  2. MITOXANTRONE [Concomitant]
     Active Substance: MITOXANTRONE HYDROCHLORIDE
     Indication: ACUTE MYELOID LEUKAEMIA
     Dates: start: 20201206
  3. VENETOCLAX. [Suspect]
     Active Substance: VENETOCLAX
     Indication: ACUTE MYELOID LEUKAEMIA
     Route: 048
     Dates: start: 20201203

REACTIONS (8)
  - Hepatic candidiasis [Not Recovered/Not Resolved]
  - Liver disorder [Unknown]
  - General physical health deterioration [Not Recovered/Not Resolved]
  - Lung infiltration [Unknown]
  - Lung disorder [Unknown]
  - Atypical pneumonia [Not Recovered/Not Resolved]
  - Hepatic lesion [Unknown]
  - Hepatic lesion [Unknown]

NARRATIVE: CASE EVENT DATE: 20201221
